FAERS Safety Report 6911199-7 (Version None)
Quarter: 2010Q3

REPORT INFORMATION
  Report Type: 
  Country: None (occurrence: None)
  Receive Date: 20100806
  Receipt Date: 20100802
  Transmission Date: 20110219
  Serious: Yes (Other)
  Sender: FDA-Public Use
  Company Number: IN-ROCHE-718339

PATIENT

DRUGS (8)
  1. CLONAZEPAM [Suspect]
     Indication: MYOCLONIC EPILEPSY
     Route: 064
     Dates: start: 20080101
  2. CLONAZEPAM [Suspect]
     Dosage: DOSAGE INCREASED
     Route: 064
     Dates: start: 20080801, end: 20090101
  3. CLONAZEPAM [Suspect]
     Dosage: DOSAGE REDUCED
     Route: 064
     Dates: start: 20090101
  4. CLONAZEPAM [Suspect]
     Dosage: DOSAGE REDUCED.
     Route: 064
     Dates: start: 20090301
  5. LAMOTRIGINE [Suspect]
     Indication: MYOCLONIC EPILEPSY
     Route: 064
  6. LAMOTRIGINE [Suspect]
     Dosage: DOSAGE INCRESAED
     Route: 064
     Dates: start: 20070601
  7. LAMOTRIGINE [Suspect]
     Dosage: DOSAGE INCREASED
     Route: 064
  8. FOLIC ACID [Concomitant]

REACTIONS (7)
  - ATRIAL SEPTAL DEFECT [None]
  - HYDROPS FOETALIS [None]
  - INTRA-UTERINE DEATH [None]
  - NEONATAL ASPIRATION [None]
  - POLYDACTYLY [None]
  - TRANSPOSITION OF THE GREAT VESSELS [None]
  - VENTRICULAR SEPTAL DEFECT [None]
